FAERS Safety Report 8224054-X (Version None)
Quarter: 2012Q1

REPORT INFORMATION
  Report Type: 
  Country: None (occurrence: None)
  Receive Date: 20120321
  Receipt Date: 20120316
  Transmission Date: 20120608
  Serious: Yes (Other)
  Sender: FDA-Public Use
  Company Number: PHHY2012NL024178

PATIENT
  Sex: Female

DRUGS (4)
  1. ZOMETA [Suspect]
     Dosage: 4 MG/100ML, 1X PER 28 DAYS
     Dates: start: 20120202
  2. ZOMETA [Suspect]
     Dosage: 4 MG/100ML, 1X PER 28 DAYS
     Dates: start: 20120227, end: 20120227
  3. ZOMETA [Suspect]
     Indication: BREAST CANCER METASTATIC
     Dosage: 4 MG/100ML, 1X PER 28 DAYS
  4. ZOMETA [Suspect]
     Dosage: 4 MG/100ML, 1X PER 28 DAYS
     Dates: start: 20111209

REACTIONS (1)
  - TERMINAL STATE [None]
